FAERS Safety Report 7207296-1 (Version None)
Quarter: 2011Q1

REPORT INFORMATION
  Report Type: 
  Country: None (occurrence: None)
  Receive Date: 20110103
  Receipt Date: 20101223
  Transmission Date: 20110831
  Serious: Yes (Other)
  Sender: FDA-Public Use
  Company Number: SI-JNJFOC-20101209221

PATIENT
  Sex: Female
  Weight: 54 kg

DRUGS (6)
  1. REMICADE [Suspect]
     Indication: PSORIATIC ARTHROPATHY
     Route: 042
  2. METHOTREXATE [Concomitant]
     Indication: PSORIATIC ARTHROPATHY
  3. MEDROL [Concomitant]
     Indication: PSORIATIC ARTHROPATHY
  4. REMICADE [Suspect]
     Route: 042
  5. DICLOFENAC [Concomitant]
     Indication: PSORIATIC ARTHROPATHY
  6. REMICADE [Suspect]
     Route: 042

REACTIONS (8)
  - PARAESTHESIA [None]
  - INFUSION RELATED REACTION [None]
  - BODY TEMPERATURE INCREASED [None]
  - DIARRHOEA [None]
  - VOMITING [None]
  - BLOOD PRESSURE DECREASED [None]
  - TINNITUS [None]
  - NAUSEA [None]
